FAERS Safety Report 4384688-X (Version None)
Quarter: 2004Q2

REPORT INFORMATION
  Report Type: 
  Country: None (occurrence: None)
  Receive Date: 20040621
  Receipt Date: 20040610
  Transmission Date: 20050107
  Serious: Yes (Other)
  Sender: FDA-Public Use
  Company Number: 207101

PATIENT
  Age: 70 Year
  Sex: Male

DRUGS (8)
  1. RITUXAN [Suspect]
     Indication: NON-HODGKIN'S LYMPHOMA
     Dosage: 640 MG, INTRAVENOUS
     Route: 042
     Dates: start: 20030312, end: 20030319
  2. CIPROFLOXACIN [Suspect]
     Indication: NON-HODGKIN'S LYMPHOMA
     Dosage: 300 MG, INTRAVENOUS
     Route: 042
     Dates: start: 20030312, end: 20030319
  3. VINCRISTINE [Concomitant]
  4. CYCLOPHOSPHAMIDE [Concomitant]
  5. DOXORUBICIN HCL [Concomitant]
  6. MEROPENEM [Concomitant]
  7. CEFPIROME SULFATE [Concomitant]
  8. PREDNISOLONE [Concomitant]

REACTIONS (2)
  - LIVER DISORDER [None]
  - PYREXIA [None]
